FAERS Safety Report 23919240 (Version 1)
Quarter: 2024Q2

REPORT INFORMATION
  Report Type: Spontaneous
  Country: CA (occurrence: CA)
  Receive Date: 20240530
  Receipt Date: 20240530
  Transmission Date: 20240716
  Serious: Yes (Other)
  Sender: FDA-Public Use
  Company Number: None

PATIENT
  Age: 51 Year
  Sex: Female

DRUGS (6)
  1. TACROLIMUS [Suspect]
     Active Substance: TACROLIMUS
     Indication: Chronic graft versus host disease
     Dosage: ASKED BUT UNKNOWN
  2. CYCLOSPORINE [Suspect]
     Active Substance: CYCLOSPORINE
     Indication: Prophylaxis against graft versus host disease
     Dosage: ASKED BUT UNKNOWN
  3. FOSCARNET SODIUM [Suspect]
     Active Substance: FOSCARNET SODIUM
     Indication: Herpes simplex
     Dosage: ASKED BUT UNKNOWN
  4. METHOTREXATE [Suspect]
     Active Substance: METHOTREXATE
     Indication: Prophylaxis against graft versus host disease
     Dosage: ASKED BUT UNKNOWN
  5. CIDOFOVIR [Suspect]
     Active Substance: CIDOFOVIR
     Indication: BK virus infection
     Dosage: ASKED BUT UNKNOWN
  6. CYCLOPHOSPHAMIDE [Suspect]
     Active Substance: CYCLOPHOSPHAMIDE
     Indication: Bone marrow conditioning regimen
     Dosage: ASKED BUT UNKNOWN

REACTIONS (6)
  - Drug ineffective [Recovering/Resolving]
  - Metabolic acidosis [Recovering/Resolving]
  - Acidosis hyperchloraemic [Recovering/Resolving]
  - Acute kidney injury [Recovering/Resolving]
  - Renal tubular injury [Recovering/Resolving]
  - Hypouricaemia [Recovering/Resolving]
